FAERS Safety Report 16008816 (Version 3)
Quarter: 2019Q1

REPORT INFORMATION
  Report Type: Spontaneous
  Country: FR (occurrence: FR)
  Receive Date: 20190226
  Receipt Date: 20190321
  Transmission Date: 20190418
  Serious: Yes (Death, Other)
  Sender: FDA-Public Use
  Company Number: FR-009507513-1902FRA010575

PATIENT
  Age: 62 Year
  Sex: Male
  Weight: 90 kg

DRUGS (5)
  1. NOREPINEPHRINE. [Concomitant]
     Active Substance: NOREPINEPHRINE
     Indication: SEPTIC SHOCK
     Dosage: 6.4 MILLIGRAM
     Route: 042
     Dates: start: 20190212, end: 20190216
  2. ARANESP [Concomitant]
     Active Substance: DARBEPOETIN ALFA
     Indication: RENAL FAILURE
     Dosage: 40 MILLIGRAM, QW
     Route: 058
     Dates: start: 20190212, end: 20190224
  3. HEPARIN [Concomitant]
     Active Substance: HEPARIN SODIUM
     Indication: VENA CAVA THROMBOSIS
     Dosage: 4200 IU INTERNATIONAL UNIT(S), QD
     Dates: start: 20190212, end: 20190225
  4. INEXIUM (ESOMEPRAZOLE MAGNESIUM) [Concomitant]
     Active Substance: ESOMEPRAZOLE MAGNESIUM
     Indication: PROPHYLAXIS
     Dosage: 40 MILLIGRAM, QD
     Route: 042
     Dates: start: 20190212, end: 20190215
  5. CUBICIN [Suspect]
     Active Substance: DAPTOMYCIN
     Indication: ENDOCARDITIS STAPHYLOCOCCAL
     Dosage: 900 MILLIGRAM/48 HOURS (10MG/KG)
     Route: 042
     Dates: start: 20190212, end: 20190215

REACTIONS (4)
  - Anoxia [Fatal]
  - Toxic skin eruption [Recovered/Resolved]
  - Coma [Fatal]
  - Off label use [Unknown]

NARRATIVE: CASE EVENT DATE: 201902
